FAERS Safety Report 8044848-3 (Version None)
Quarter: 2012Q1

REPORT INFORMATION
  Report Type: 
  Country: None (occurrence: None)
  Receive Date: 20120113
  Receipt Date: 20120105
  Transmission Date: 20120608
  Serious: Yes (Death, Life-Threatening, Hospitalization, Disabling, Other)
  Sender: FDA-Public Use
  Company Number: PL-JNJFOC-20111209525

PATIENT
  Sex: Male
  Weight: 75 kg

DRUGS (3)
  1. ABIRATERONE ACETATE [Suspect]
     Indication: PROSTATE CANCER METASTATIC
     Route: 048
     Dates: start: 20110629, end: 20111205
  2. ABIRATERONE ACETATE [Suspect]
     Route: 048
  3. PREDNISONE [Suspect]
     Indication: PROSTATE CANCER METASTATIC
     Route: 065
     Dates: start: 20110629, end: 20111205

REACTIONS (4)
  - DEHYDRATION [None]
  - URETHRAL STENOSIS [None]
  - URINARY RETENTION [None]
  - DECREASED APPETITE [None]
